FAERS Safety Report 23039930 (Version 1)
Quarter: 2023Q4

REPORT INFORMATION
  Report Type: Spontaneous
  Country: US (occurrence: US)
  Receive Date: 20231006
  Receipt Date: 20231006
  Transmission Date: 20240109
  Serious: Yes (Other)
  Sender: FDA-Public Use
  Company Number: US-AMGEN-USASP2023173053

PATIENT

DRUGS (4)
  1. XGEVA [Suspect]
     Active Substance: DENOSUMAB
     Indication: Metastases to bone
     Dosage: UNK
     Route: 065
  2. XGEVA [Suspect]
     Active Substance: DENOSUMAB
     Indication: Breast cancer
  3. IBRANCE [Concomitant]
     Active Substance: PALBOCICLIB
  4. FASLODEX [Concomitant]
     Active Substance: FULVESTRANT

REACTIONS (4)
  - Breast cancer metastatic [Unknown]
  - Iliotibial band syndrome [Unknown]
  - Greater trochanteric pain syndrome [Unknown]
  - Cartilage injury [Unknown]
